FAERS Safety Report 19846372 (Version 1)
Quarter: 2021Q3

REPORT INFORMATION
  Report Type: Spontaneous
  Country: US (occurrence: US)
  Receive Date: 20210917
  Receipt Date: 20210917
  Transmission Date: 20211014
  Serious: No
  Sender: FDA-Public Use
  Company Number: US-GLAXOSMITHKLINE-US2021196605

PATIENT
  Sex: Female

DRUGS (1)
  1. SOTROVIMAB FOR COVID?19 BY INTERIM ORDER/EMERGENCY USE AUTHORIZATION [Suspect]
     Active Substance: SOTROVIMAB
     Indication: PRODUCT USED FOR UNKNOWN INDICATION
     Dosage: 500 MG, SINGLE DOSE
     Route: 042
     Dates: start: 20210826

REACTIONS (2)
  - Drug ineffective [Unknown]
  - Malaise [Not Recovered/Not Resolved]

NARRATIVE: CASE EVENT DATE: 2021
